FAERS Safety Report 19998362 (Version 3)
Quarter: 2021Q4

REPORT INFORMATION
  Report Type: Spontaneous
  Country: CH (occurrence: CH)
  Receive Date: 20211026
  Receipt Date: 20211108
  Transmission Date: 20220303
  Serious: Yes (Other)
  Sender: FDA-Public Use
  Company Number: None

PATIENT
  Age: 39 Year
  Sex: Female

DRUGS (10)
  1. BILASTINE [Suspect]
     Active Substance: BILASTINE
     Dosage: 20 MG MILLIGRAM
     Route: 048
  2. KETALAR [Suspect]
     Active Substance: KETAMINE HYDROCHLORIDE
     Dosage: 20 MG MILLIGRAM, EVERY 6 WEEKS
     Route: 042
  3. XANAX [Suspect]
     Active Substance: ALPRAZOLAM
     Dosage: 1.5 MG MILLIGRAM
     Route: 048
  4. ATARAX [Suspect]
     Active Substance: HYDROXYZINE HYDROCHLORIDE
     Dosage: 25 MG MILLIGRAM
     Route: 048
  5. CYMBALTA [Suspect]
     Active Substance: DULOXETINE HYDROCHLORIDE
     Dosage: 60 MG MILLIGRAM
     Route: 048
  6. PROPOFOL [Suspect]
     Active Substance: PROPOFOL
     Dosage: 20 MG, EVERY 6 WEEKS
     Route: 042
  7. XYLOCAINE [Suspect]
     Active Substance: LIDOCAINE HYDROCHLORIDE
     Dosage: 120 MG, EVERY 6 WEEKS
     Route: 042
  8. METHOCARBAMOL [Suspect]
     Active Substance: METHOCARBAMOL
     Dosage: 1500 MG MILLIGRAM
     Route: 048
  9. MOVICOL [Concomitant]
     Active Substance: POLYETHYLENE GLYCOL 3350\POTASSIUM CHLORIDE\SODIUM BICARBONATE\SODIUM CHLORIDE
     Dosage: UNK UNK, AS NEEDED
     Route: 048
  10. ANDREAFOL [Concomitant]
     Dosage: UNK
     Route: 048

REACTIONS (3)
  - Abortion spontaneous [Recovered/Resolved]
  - Off label use [Unknown]
  - Product use issue [Unknown]

NARRATIVE: CASE EVENT DATE: 20210201
